FAERS Safety Report 8321030-3 (Version None)
Quarter: 2012Q2

REPORT INFORMATION
  Report Type: 
  Country: None (occurrence: None)
  Receive Date: 20120430
  Receipt Date: 20120413
  Transmission Date: 20120825
  Serious: No
  Sender: FDA-Public Use
  Company Number: US-JNJFOC-20120312978

PATIENT
  Sex: Male

DRUGS (1)
  1. INVEGA SUSTENNA [Suspect]
     Indication: PRODUCT USED FOR UNKNOWN INDICATION
     Route: 030
     Dates: start: 20111011

REACTIONS (3)
  - DEVICE LEAKAGE [None]
  - WRONG TECHNIQUE IN DRUG USAGE PROCESS [None]
  - DRUG DOSE OMISSION [None]
